FAERS Safety Report 4360239-0 (Version None)
Quarter: 2004Q2

REPORT INFORMATION
  Report Type: 
  Country: None (occurrence: None)
  Receive Date: 20040518
  Receipt Date: 20040518
  Transmission Date: 20050107
  Serious: Yes (Life-Threatening, Hospitalization)
  Sender: FDA-Public Use
  Company Number: None

PATIENT
  Age: 26 Year
  Sex: Female
  Weight: 62 kg

DRUGS (4)
  1. ACETAMINOPHEN [Suspect]
     Indication: OVERDOSE
     Dosage: 30 GM PO
     Route: 048
     Dates: start: 20040219
  2. NAPROXEN [Suspect]
     Indication: OVERDOSE
     Dates: start: 20040219
  3. LANSOPRAZOLE [Concomitant]
  4. NYQUIL [Suspect]
     Dates: start: 20040219

REACTIONS (7)
  - ALANINE AMINOTRANSFERASE INCREASED [None]
  - ASPARTATE AMINOTRANSFERASE INCREASED [None]
  - DRUG ABUSER [None]
  - FEELING ABNORMAL [None]
  - GASTROOESOPHAGEAL REFLUX DISEASE [None]
  - MENTAL STATUS CHANGES [None]
  - MULTIPLE DRUG OVERDOSE [None]
